FAERS Safety Report 6711524-6 (Version None)
Quarter: 2010Q2

REPORT INFORMATION
  Report Type: 
  Country: None (occurrence: None)
  Receive Date: 20100505
  Receipt Date: 20100421
  Transmission Date: 20101027
  Serious: Yes (Hospitalization)
  Sender: FDA-Public Use
  Company Number: PHHY2010US25769

PATIENT
  Sex: Female

DRUGS (4)
  1. ZOMETA [Suspect]
     Dosage: 3 MG, 1 IN 1 D
     Dates: start: 20090806
  2. REVLIMID [Suspect]
     Indication: MULTIPLE MYELOMA
     Dosage: 10 MG, DAILY
     Route: 048
     Dates: start: 20090730
  3. DEXAMETHASONE [Concomitant]
     Dosage: 20 MG, DAILY
  4. ASPIRIN [Concomitant]
     Dosage: 81 MG, DAILY

REACTIONS (4)
  - EAR PAIN [None]
  - FATIGUE [None]
  - GOUT [None]
  - NECK PAIN [None]
